FAERS Safety Report 7478061-5 (Version None)
Quarter: 2011Q2

REPORT INFORMATION
  Report Type: 
  Country: None (occurrence: None)
  Receive Date: 20110511
  Receipt Date: 20110511
  Transmission Date: 20111010
  Serious: Yes (Life-Threatening, Hospitalization, Other)
  Sender: FDA-Public Use
  Company Number: None

PATIENT
  Age: 40 Year
  Sex: Female
  Weight: 61.2356 kg

DRUGS (5)
  1. XANEX [Concomitant]
  2. COMPAZINE [Suspect]
     Indication: DRUG HYPERSENSITIVITY
     Dosage: SO MANY  IV DRIP
     Route: 041
     Dates: start: 20110205, end: 20110205
  3. HYDROMORPHONE HCL [Suspect]
     Indication: RESPIRATORY FAILURE
     Dosage: SO MANY IV
     Route: 042
  4. VESIRIL [Concomitant]
  5. BARBITUATES [Concomitant]

REACTIONS (3)
  - AMENORRHOEA [None]
  - TARDIVE DYSKINESIA [None]
  - ABDOMINAL PAIN [None]
